FAERS Safety Report 5777760-0 (Version None)
Quarter: 2008Q2

REPORT INFORMATION
  Report Type: 
  Country: None (occurrence: None)
  Receive Date: 20080618
  Receipt Date: 20080609
  Transmission Date: 20081010
  Serious: Yes (Hospitalization, Other)
  Sender: FDA-Public Use
  Company Number: US-PFIZER INC-2008048756

PATIENT
  Sex: Female
  Weight: 57.2 kg

DRUGS (11)
  1. LIPITOR [Suspect]
     Indication: BLOOD CHOLESTEROL INCREASED
     Route: 048
  2. METOPROLOL [Suspect]
     Indication: HYPERTENSION
  3. POTASSIUM CHLORIDE [Concomitant]
  4. MECLIZINE [Concomitant]
  5. ALL OTHER THERAPEUTIC PRODUCTS [Concomitant]
  6. ACTONEL [Concomitant]
  7. FLUOXETINE [Concomitant]
  8. LORAZEPAM [Concomitant]
  9. PREMARIN [Concomitant]
  10. DICYCLOMINE [Concomitant]
  11. VITAMIN D [Concomitant]

REACTIONS (6)
  - ABASIA [None]
  - BLOOD GLUCOSE INCREASED [None]
  - BLOOD PRESSURE ABNORMAL [None]
  - DIZZINESS [None]
  - PUPILLARY DISORDER [None]
  - TREMOR [None]
